FAERS Safety Report 4363919-6 (Version None)
Quarter: 2004Q2

REPORT INFORMATION
  Report Type: 
  Country: None (occurrence: None)
  Receive Date: 20040524
  Receipt Date: 20040524
  Transmission Date: 20050107
  Serious: Yes (Hospitalization)
  Sender: FDA-Public Use
  Company Number: None

PATIENT
  Age: 82 Year
  Sex: Male
  Weight: 77.3 kg

DRUGS (4)
  1. ASPIRIN [Suspect]
  2. SIMVASTATIN [Concomitant]
  3. ISOSORBIDE MONONITRATE [Concomitant]
  4. VERAPAMIL HCL [Concomitant]

REACTIONS (1)
  - GASTROINTESTINAL HAEMORRHAGE [None]
